FAERS Safety Report 7423985-8 (Version None)
Quarter: 2011Q2

REPORT INFORMATION
  Report Type: 
  Country: None (occurrence: None)
  Receive Date: 20110419
  Receipt Date: 20110411
  Transmission Date: 20111010
  Serious: Yes (Hospitalization)
  Sender: FDA-Public Use
  Company Number: B0713873A

PATIENT
  Age: 24 Year
  Sex: Female

DRUGS (2)
  1. THERAFLU [Concomitant]
     Route: 048
     Dates: start: 20110315, end: 20110315
  2. ZINNAT [Suspect]
     Indication: URINARY TRACT INFECTION
     Dosage: 500MG SINGLE DOSE
     Route: 048
     Dates: start: 20110315, end: 20110315

REACTIONS (4)
  - MENSTRUAL DISORDER [None]
  - SWELLING [None]
  - ANGIOEDEMA [None]
  - DYSPNOEA [None]
